FAERS Safety Report 15131109 (Version 1)
Quarter: 2018Q3

REPORT INFORMATION
  Report Type: Spontaneous
  Country: MX (occurrence: MX)
  Receive Date: 20180711
  Receipt Date: 20180711
  Transmission Date: 20181010
  Serious: Yes (Death)
  Sender: FDA-Public Use
  Company Number: MX-SEATTLE GENETICS-2018SGN01578

PATIENT
  Age: 25 Year
  Sex: Male

DRUGS (1)
  1. ADCETRIS [Suspect]
     Active Substance: BRENTUXIMAB VEDOTIN
     Indication: HODGKIN^S DISEASE
     Dosage: 1.8 MG/KG, Q21D
     Route: 042
     Dates: start: 20180219, end: 201804

REACTIONS (1)
  - Death [Fatal]

NARRATIVE: CASE EVENT DATE: 20180705
